FAERS Safety Report 23289371 (Version 2)
Quarter: 2024Q2

REPORT INFORMATION
  Report Type: Spontaneous
  Country: US (occurrence: US)
  Receive Date: 20231212
  Receipt Date: 20240427
  Transmission Date: 20240716
  Serious: Yes (Other)
  Sender: FDA-Public Use
  Company Number: US-TEVA-VS-3134814

PATIENT
  Age: 78 Year
  Sex: Female

DRUGS (2)
  1. METHYLPREDNISOLONE [Suspect]
     Active Substance: METHYLPREDNISOLONE
     Indication: Endocrine ophthalmopathy
     Dosage: DURATION: 4 WEEKS
     Route: 042
     Dates: start: 201904, end: 2019
  2. TEPROTUMUMAB [Suspect]
     Active Substance: TEPROTUMUMAB
     Indication: Endocrine ophthalmopathy
     Dosage: 8 CYCLES OF TEPROTUMUMAB
     Route: 065
     Dates: start: 2020

REACTIONS (2)
  - Myopathy [Unknown]
  - Hypoacusis [Recovered/Resolved]
